FAERS Safety Report 25323669 (Version 1)
Quarter: 2025Q2

REPORT INFORMATION
  Report Type: Spontaneous
  Country: GB (occurrence: GB)
  Receive Date: 20250516
  Receipt Date: 20250516
  Transmission Date: 20250716
  Serious: Yes (Other)
  Sender: AUROBINDO
  Company Number: GB-MHRA-MED-202504261740484210-WVHNP

PATIENT
  Sex: Female
  Weight: 83 kg

DRUGS (1)
  1. LINEZOLID [Suspect]
     Active Substance: LINEZOLID
     Indication: Staphylococcal infection
     Dosage: 600 MILLIGRAM, TWO TIMES A DAY
     Route: 065
     Dates: start: 20250307, end: 20250404

REACTIONS (6)
  - Skin exfoliation [Recovered/Resolved]
  - Myelosuppression [Recovering/Resolving]
  - Trichoglossia [Recovering/Resolving]
  - Nausea [Recovered/Resolved]
  - Tooth discolouration [Recovering/Resolving]
  - Diarrhoea [Recovered/Resolved]
